FAERS Safety Report 10068631 (Version 1)
Quarter: 2014Q2

REPORT INFORMATION
  Report Type: Spontaneous
  Country: US (occurrence: US)
  Receive Date: 20140409
  Receipt Date: 20140409
  Transmission Date: 20141212
  Serious: Yes (Hospitalization)
  Sender: FDA-Public Use
  Company Number: US-GLAXOSMITHKLINE-A1068751A

PATIENT
  Age: 72 Year
  Sex: Female

DRUGS (1)
  1. VOTRIENT [Suspect]
     Indication: BONE CANCER
     Dosage: 4TAB PER DAY
     Route: 065
     Dates: start: 201401, end: 201403

REACTIONS (3)
  - Coma [Unknown]
  - Investigation [Unknown]
  - Drug ineffective [Unknown]
